FAERS Safety Report 5739343-8 (Version None)
Quarter: 2008Q2

REPORT INFORMATION
  Report Type: 
  Country: None (occurrence: None)
  Receive Date: 20080515
  Receipt Date: 20080502
  Transmission Date: 20081010
  Serious: Yes (Hospitalization, Other)
  Sender: FDA-Public Use
  Company Number: US-ELI_LILLY_AND_COMPANY-US200709002692

PATIENT
  Sex: Female

DRUGS (5)
  1. FORTEO [Suspect]
     Indication: OSTEOPOROSIS
     Dates: start: 20061231
  2. FORTEO [Suspect]
     Dates: start: 20061231
  3. FORTEO [Suspect]
     Dates: start: 20061231
  4. ASACOL [Concomitant]
     Indication: COLITIS ULCERATIVE
  5. VITAMINS [Concomitant]

REACTIONS (10)
  - BONE PAIN [None]
  - FALL [None]
  - FEELING ABNORMAL [None]
  - HIP FRACTURE [None]
  - MUSCULOSKELETAL CHEST PAIN [None]
  - PELVIC FRACTURE [None]
  - POSTURE ABNORMAL [None]
  - RIB FRACTURE [None]
  - SPINAL DISORDER [None]
  - SPINAL FRACTURE [None]
